FAERS Safety Report 5072439-5 (Version None)
Quarter: 2006Q3

REPORT INFORMATION
  Report Type: 
  Country: None (occurrence: None)
  Receive Date: 20060801
  Receipt Date: 20060720
  Transmission Date: 20061208
  Serious: Yes (Death)
  Sender: FDA-Public Use
  Company Number: US200606002718

PATIENT
  Sex: Male

DRUGS (1)
  1. HUMULIN 70/30 [Suspect]

REACTIONS (1)
  - HAEMORRHAGIC STROKE [None]
